FAERS Safety Report 14804462 (Version 1)
Quarter: 2018Q2

REPORT INFORMATION
  Report Type: Spontaneous
  Country: US (occurrence: US)
  Receive Date: 20180425
  Receipt Date: 20180425
  Transmission Date: 20180711
  Serious: No
  Sender: FDA-Public Use
  Company Number: US-TEVA-2018-US-869707

PATIENT
  Age: 35 Year

DRUGS (3)
  1. MIRENA [Concomitant]
     Active Substance: LEVONORGESTREL
  2. CLARAVIS [Suspect]
     Active Substance: ISOTRETINOIN
     Route: 065
  3. IBUPROFEN. [Concomitant]
     Active Substance: IBUPROFEN

REACTIONS (2)
  - Depression [Recovered/Resolved]
  - Anxiety [Recovered/Resolved]

NARRATIVE: CASE EVENT DATE: 20180126
